FAERS Safety Report 6100002-3 (Version None)
Quarter: 2009Q1

REPORT INFORMATION
  Report Type: 
  Country: None (occurrence: None)
  Receive Date: 20090303
  Receipt Date: 20090302
  Transmission Date: 20090719
  Serious: Yes (Other)
  Sender: FDA-Public Use
  Company Number: A0770937A

PATIENT
  Age: 49 Year
  Sex: Female

DRUGS (2)
  1. VALTREX [Suspect]
     Indication: GENITAL HERPES
     Dosage: 500MG PER DAY
     Route: 048
     Dates: start: 20070101
  2. SYNTHROID [Concomitant]

REACTIONS (2)
  - PERONEAL NERVE PALSY [None]
  - TREMOR [None]
